FAERS Safety Report 23086217 (Version 2)
Quarter: 2023Q4

REPORT INFORMATION
  Report Type: Spontaneous
  Country: BE (occurrence: BE)
  Receive Date: 20231019
  Receipt Date: 20231031
  Transmission Date: 20240109
  Serious: Yes (Other)
  Sender: FDA-Public Use
  Company Number: BE-PFIZER INC-PV202300130393

PATIENT
  Age: 19 Year
  Sex: Male
  Weight: 99.5 kg

DRUGS (3)
  1. SOMAVERT [Suspect]
     Active Substance: PEGVISOMANT
     Dosage: 30 MG, ALTERNATE DAY (30 MG EVERY TWO DAYS)
     Route: 058
     Dates: start: 20230726
  2. OCTREOTIDE ACETATE [Concomitant]
     Active Substance: OCTREOTIDE ACETATE
     Dosage: 30 MG, MONTHLY (EVERY 4 WEEKS)
  3. CABERGOLINE [Concomitant]
     Active Substance: CABERGOLINE
     Dosage: 0.5 MG, DAILY

REACTIONS (12)
  - Weight decreased [Unknown]
  - Fatigue [Unknown]
  - Muscle strength abnormal [Unknown]
  - Asthenia [Unknown]
  - Aggression [Unknown]
  - Lethargy [Unknown]
  - Feeling abnormal [Unknown]
  - Affect lability [Unknown]
  - Crying [Unknown]
  - Anger [Unknown]
  - Off label use [Unknown]
  - Product use issue [Unknown]

NARRATIVE: CASE EVENT DATE: 20230726
